FAERS Safety Report 10366543 (Version 2)
Quarter: 2014Q3

REPORT INFORMATION
  Report Type: Spontaneous
  Country: DK (occurrence: DK)
  Receive Date: 20140806
  Receipt Date: 20140827
  Transmission Date: 20150326
  Serious: Yes (Hospitalization)
  Sender: FDA-Public Use
  Company Number: DK-PFIZER INC-2014215833

PATIENT
  Age: 63 Year
  Sex: Male

DRUGS (3)
  1. ZYVOXID [Suspect]
     Active Substance: LINEZOLID
     Indication: INFECTION
     Dosage: UNK
     Dates: start: 200911, end: 20100108
  2. PREDNISOLON [Concomitant]
     Active Substance: PREDNISOLONE
     Dosage: UNK
     Dates: start: 200909
  3. METRONIDAZOLE. [Concomitant]
     Active Substance: METRONIDAZOLE
     Dosage: UNK

REACTIONS (4)
  - Malaise [Unknown]
  - Feeling cold [Unknown]
  - Peripheral sensory neuropathy [Unknown]
  - Paraesthesia [Unknown]

NARRATIVE: CASE EVENT DATE: 20091210
